FAERS Safety Report 4446255-9 (Version None)
Quarter: 2004Q3

REPORT INFORMATION
  Report Type: 
  Country: None (occurrence: None)
  Receive Date: 20040902
  Receipt Date: 20030924
  Transmission Date: 20050211
  Serious: Yes (Hospitalization)
  Sender: FDA-Public Use
  Company Number: MK200309-0457-1

PATIENT
  Sex: Female

DRUGS (2)
  1. HEXABRIX [Suspect]
     Indication: HYSTEROSALPINGOGRAM
     Dates: start: 20030729, end: 20030729
  2. VIBRACINA [Concomitant]

REACTIONS (6)
  - ABDOMINAL PAIN [None]
  - DIARRHOEA [None]
  - PELVIC PAIN [None]
  - POST PROCEDURAL COMPLICATION [None]
  - PYREXIA [None]
  - VOMITING [None]
